FAERS Safety Report 17398343 (Version 1)
Quarter: 2020Q1

REPORT INFORMATION
  Report Type: Spontaneous
  Country: US (occurrence: US)
  Receive Date: 20200210
  Receipt Date: 20200210
  Transmission Date: 20200409
  Serious: No
  Sender: FDA-Public Use
  Company Number: US-VAYAPHARMA-2018-US-007556

PATIENT
  Age: 39 Year
  Sex: Male

DRUGS (1)
  1. VAYARIN [Suspect]
     Active Substance: DOCONEXENT\ICOSAPENT\PHOSPHATIDYL SERINE
     Indication: MEMORY IMPAIRMENT
     Dosage: 4 CAPSULES EVERY MORNING
     Route: 048
     Dates: start: 201711, end: 20180504

REACTIONS (4)
  - Distractibility [Not Recovered/Not Resolved]
  - Condition aggravated [Not Recovered/Not Resolved]
  - Agitation [Not Recovered/Not Resolved]
  - Therapeutic product ineffective [Unknown]

NARRATIVE: CASE EVENT DATE: 201711
